FAERS Safety Report 11596840 (Version 1)
Quarter: 2015Q4

REPORT INFORMATION
  Report Type: Spontaneous
  Country: US (occurrence: None)
  Receive Date: 20151005
  Receipt Date: 20151005
  Transmission Date: 20160304
  Serious: Yes (Disabling)
  Sender: FDA-Public Use
  Company Number: None

PATIENT
  Age: 44 Year
  Sex: Female
  Weight: 145.15 kg

DRUGS (15)
  1. FISH OIL [Concomitant]
     Active Substance: FISH OIL
  2. YOUNGEVITY ESSENTIAL MINERALS AND VITAMINS [Concomitant]
  3. ARMOUR THYROID [Concomitant]
     Active Substance: THYROID, PORCINE\THYROID, UNSPECIFIED
  4. MAGNESIUM [Concomitant]
     Active Substance: MAGNESIUM
  5. FLUOROQUINOLONES [Suspect]
     Active Substance: UNSPECIFIED INGREDIENT
  6. NEUROFLEX [Concomitant]
     Active Substance: CAMPHOR, (-)-\MENTHOL, (+)-
  7. NAC [Concomitant]
  8. PRE AND PROBIOTICS [Concomitant]
  9. ZINC [Concomitant]
     Active Substance: ZINC\ZINC CHLORIDE
  10. C PAP MACHINE [Concomitant]
  11. SERRAPEPTASE [Concomitant]
     Active Substance: SERRAPEPTASE
  12. ACTONEL [Suspect]
     Active Substance: RISEDRONATE SODIUM
     Indication: OSTEOPENIA
  13. VIT K [Concomitant]
  14. SELENIUM [Concomitant]
     Active Substance: SELENIUM
  15. VITAMIN D [Concomitant]
     Active Substance: CHOLECALCIFEROL

REACTIONS (36)
  - Endometrial cancer [None]
  - Overweight [None]
  - Ear pain [None]
  - Tendon rupture [None]
  - Circadian rhythm sleep disorder [None]
  - Muscle spasms [None]
  - Pain in extremity [None]
  - Post-traumatic stress disorder [None]
  - Adrenal disorder [None]
  - Stress [None]
  - Mobility decreased [None]
  - Hearing impaired [None]
  - Anxiety [None]
  - Cyst rupture [None]
  - Muscle rupture [None]
  - Fatigue [None]
  - Paraesthesia [None]
  - Restless legs syndrome [None]
  - Nerve injury [None]
  - Loss of employment [None]
  - Arthropathy [None]
  - Gait disturbance [None]
  - Hypothyroidism [None]
  - Ligament rupture [None]
  - Autoimmune thyroiditis [None]
  - Visual impairment [None]
  - Muscle strain [None]
  - Peripheral swelling [None]
  - Balance disorder [None]
  - Tremor [None]
  - Arthralgia [None]
  - Joint swelling [None]
  - Pain [None]
  - Intervertebral disc disorder [None]
  - Sleep apnoea syndrome [None]
  - Pyrexia [None]

NARRATIVE: CASE EVENT DATE: 19961123
